FAERS Safety Report 5514602-2 (Version None)
Quarter: 2007Q4

REPORT INFORMATION
  Report Type: 
  Country: None (occurrence: None)
  Receive Date: 20071113
  Receipt Date: 20071105
  Transmission Date: 20080405
  Serious: Yes (Hospitalization)
  Sender: FDA-Public Use
  Company Number: FR-ELI_LILLY_AND_COMPANY-FR200709006044

PATIENT
  Sex: Female

DRUGS (4)
  1. FORTEO [Suspect]
     Indication: OSTEOPOROSIS
     Dosage: 20 UG, DAILY (1/D)
     Route: 058
     Dates: start: 20070326, end: 20071008
  2. SKENAN [Concomitant]
     Indication: PAIN
     Dosage: 60 MG, 2/D
     Dates: start: 20070701
  3. SPIRIVA [Concomitant]
     Indication: CHRONIC OBSTRUCTIVE PULMONARY DISEASE
     Dosage: 1 D/F, DAILY (1/D)
     Dates: start: 20070401
  4. OROCAL D(3) [Concomitant]
     Dosage: 2 D/F, DAILY (1/D)
     Dates: start: 20070401

REACTIONS (1)
  - ATRIAL FIBRILLATION [None]
